FAERS Safety Report 9450108 (Version 1)
Quarter: 2013Q3

REPORT INFORMATION
  Report Type: Spontaneous
  Country: FR (occurrence: FR)
  Receive Date: 20130809
  Receipt Date: 20130809
  Transmission Date: 20140515
  Serious: Yes (Hospitalization)
  Sender: FDA-Public Use
  Company Number: FR-PFIZER INC-2013228435

PATIENT
  Age: 56 Year
  Sex: Male

DRUGS (9)
  1. DEPO-MEDROL [Suspect]
     Dosage: UNK
     Route: 037
     Dates: start: 20130223, end: 20130223
  2. DEPO-MEDROL [Suspect]
     Dosage: UNK
     Route: 037
     Dates: start: 20130308, end: 20130308
  3. METHOTREXATE [Suspect]
     Dosage: UNK
     Route: 037
     Dates: start: 20130223, end: 20130223
  4. METHOTREXATE [Suspect]
     Dosage: UNK
     Route: 037
     Dates: start: 20130308, end: 20130308
  5. PREZISTA [Concomitant]
     Dosage: UNK
     Dates: start: 2012
  6. TRUVADA [Concomitant]
     Dosage: UNK
     Dates: start: 2012
  7. NORVIR [Concomitant]
     Dosage: UNK
     Dates: start: 2012
  8. BACTRIM [Concomitant]
     Dosage: UNK
     Dates: start: 2012
  9. ZELITREX [Concomitant]
     Dosage: UNK
     Dates: start: 2012

REACTIONS (2)
  - Cerebral thrombosis [Recovered/Resolved]
  - Off label use [Unknown]
